FAERS Safety Report 6429113-X (Version None)
Quarter: 2009Q4

REPORT INFORMATION
  Report Type: 
  Country: None (occurrence: None)
  Receive Date: 20091030
  Receipt Date: 20091015
  Transmission Date: 20100525
  Serious: Yes (Other)
  Sender: FDA-Public Use
  Company Number: 2009003182

PATIENT
  Sex: Male
  Weight: 86.8 kg

DRUGS (11)
  1. ERLOTINIB HYDROCHLORIDE [Suspect]
     Indication: OESOPHAGEAL CARCINOMA
     Dosage: 100 MG, QD, ORAL
     Route: 048
     Dates: start: 20090910
  2. BEVACIZUMAB (INJECTION OF INFUSION) [Suspect]
     Indication: OESOPHAGEAL CARCINOMA
     Dosage: 15 MG KG, INTRAVENOUS
     Route: 042
     Dates: start: 20090910
  3. CARBOPLATIN [Suspect]
     Indication: OESOPHAGEAL CARCINOMA
     Dosage: 687 MG
     Dates: start: 20090910
  4. TAXOL [Suspect]
     Indication: OESOPHAGEAL CARCINOMA
     Dosage: 428 MG
     Dates: start: 20090910
  5. FLUOROURACIL [Suspect]
     Indication: OESOPHAGEAL CARCINOMA
     Dosage: 3371 MG
     Dates: start: 20090910
  6. LEVAQUIN [Concomitant]
  7. CEFEPINE (CEFEPIME) [Concomitant]
  8. VANCOMYCIN [Concomitant]
  9. ARIXTRA [Concomitant]
  10. NYSTATIN [Concomitant]
  11. NEUPOGEN [Concomitant]

REACTIONS (1)
  - MUCOSAL INFLAMMATION [None]
